FAERS Safety Report 10005226 (Version 2)
Quarter: 2014Q1

REPORT INFORMATION
  Report Type: Spontaneous
  Country: US (occurrence: US)
  Receive Date: 20140312
  Receipt Date: 20140312
  Transmission Date: 20141002
  Serious: No
  Sender: FDA-Public Use
  Company Number: US-GILEAD-2012-0058969

PATIENT
  Sex: Female

DRUGS (2)
  1. LETAIRIS [Suspect]
     Indication: PULMONARY HYPERTENSION
     Dosage: UNK
     Route: 048
     Dates: start: 20120605, end: 20120726
  2. LETAIRIS [Suspect]
     Indication: HEPATIC CIRRHOSIS

REACTIONS (3)
  - Respiratory disorder [Unknown]
  - Oedema peripheral [Unknown]
  - Upper respiratory tract congestion [Unknown]
